FAERS Safety Report 8110333-3 (Version None)
Quarter: 2012Q1

REPORT INFORMATION
  Report Type: 
  Country: None (occurrence: None)
  Receive Date: 20120202
  Receipt Date: 20120130
  Transmission Date: 20120608
  Serious: Yes (Hospitalization, Other)
  Sender: FDA-Public Use
  Company Number: BR-ROCHE-1033209

PATIENT
  Sex: Female
  Weight: 85 kg

DRUGS (9)
  1. FLUOXETINE [Concomitant]
  2. DAFLON (BRAZIL) [Concomitant]
  3. WARFARIN SODIUM [Concomitant]
  4. OMEPRAZOLE [Concomitant]
  5. ACETYLSALICYLIC ACID SRT [Concomitant]
  6. MABTHERA [Suspect]
     Indication: RHEUMATOID ARTHRITIS
     Route: 042
     Dates: start: 20110429, end: 20110429
  7. MICARDIS [Concomitant]
     Dosage: 40/12.5 MG
  8. FOLIC ACID [Concomitant]
  9. VITAMIN B-12 [Concomitant]

REACTIONS (3)
  - SKIN ULCER [None]
  - SEPSIS [None]
  - ERYSIPELAS [None]
